FAERS Safety Report 15631913 (Version 1)
Quarter: 2018Q4

REPORT INFORMATION
  Report Type: Spontaneous
  Country: US (occurrence: US)
  Receive Date: 20181119
  Receipt Date: 20181119
  Transmission Date: 20190205
  Serious: Yes (Life-Threatening, Hospitalization, Other)
  Sender: FDA-Public Use
  Company Number: US-LUPIN PHARMACEUTICALS INC.-2018-07946

PATIENT
  Age: 19 Year
  Sex: Male

DRUGS (1)
  1. METFORMIN [Suspect]
     Active Substance: METFORMIN HYDROCHLORIDE
     Indication: SUICIDE ATTEMPT
     Dosage: 360 DF, UNK
     Route: 065

REACTIONS (9)
  - Overdose [Unknown]
  - Metabolic acidosis [Recovering/Resolving]
  - Toxicity to various agents [Unknown]
  - Agitation [Recovered/Resolved]
  - Hypotension [Unknown]
  - Hypoglycaemia [Unknown]
  - Drug level increased [Recovering/Resolving]
  - Confusional state [Recovered/Resolved]
  - Vomiting [Unknown]
